FAERS Safety Report 8304703-8 (Version None)
Quarter: 2012Q2

REPORT INFORMATION
  Report Type: 
  Country: None (occurrence: None)
  Receive Date: 20120423
  Receipt Date: 20120413
  Transmission Date: 20120825
  Serious: Yes (Other)
  Sender: FDA-Public Use
  Company Number: BE-ASTRAZENECA-2012SE25285

PATIENT
  Age: 97 Year
  Sex: Male

DRUGS (4)
  1. VIMOVO [Suspect]
     Route: 048
  2. CARVEDILOL [Concomitant]
  3. LANITOP [Concomitant]
  4. TORREM [Concomitant]

REACTIONS (2)
  - BLOOD CREATININE INCREASED [None]
  - TOXICITY TO VARIOUS AGENTS [None]
